FAERS Safety Report 7726067-0 (Version None)
Quarter: 2011Q3

REPORT INFORMATION
  Report Type: 
  Country: None (occurrence: None)
  Receive Date: 20110902
  Receipt Date: 20110831
  Transmission Date: 20111222
  Serious: Yes (Death, Hospitalization)
  Sender: FDA-Public Use
  Company Number: FR-CEPHALON-2011004429

PATIENT
  Sex: Female
  Weight: 62 kg

DRUGS (6)
  1. TRISENOX [Suspect]
     Indication: ACUTE PROMYELOCYTIC LEUKAEMIA
     Route: 041
     Dates: start: 20110712, end: 20110804
  2. UMULINE [Concomitant]
     Dates: start: 20110712, end: 20110808
  3. GLUCOVANCE [Concomitant]
     Dates: start: 20110711, end: 20110808
  4. NICARDIPINE HCL [Concomitant]
     Dates: start: 20110712, end: 20110808
  5. CYTARABINE [Suspect]
     Indication: ACUTE PROMYELOCYTIC LEUKAEMIA
     Route: 042
     Dates: start: 20110712, end: 20110717
  6. IDARUBICIN HCL [Suspect]
     Indication: ACUTE PROMYELOCYTIC LEUKAEMIA
     Route: 042
     Dates: start: 20110712, end: 20110715

REACTIONS (5)
  - INFECTION [None]
  - PETECHIAE [None]
  - FEBRILE BONE MARROW APLASIA [None]
  - TOXIC ENCEPHALOPATHY [None]
  - SEPTIC SHOCK [None]
